FAERS Safety Report 12119263 (Version 2)
Quarter: 2016Q2

REPORT INFORMATION
  Report Type: Spontaneous
  Country: US (occurrence: US)
  Receive Date: 20160226
  Receipt Date: 20160524
  Transmission Date: 20160815
  Serious: No
  Sender: FDA-Public Use
  Company Number: US-PURDUE-USA-2016-0128824

PATIENT
  Age: 30 Year
  Sex: Male
  Weight: 62.59 kg

DRUGS (1)
  1. HYSINGLA ER [Suspect]
     Active Substance: HYDROCODONE BITARTRATE
     Indication: OSTEOCHONDROSIS
     Dosage: 20 MG, Q24H
     Route: 048
     Dates: start: 20151001, end: 20160128

REACTIONS (3)
  - Insomnia [Recovered/Resolved]
  - Decreased appetite [Unknown]
  - Weight decreased [Recovered/Resolved]

NARRATIVE: CASE EVENT DATE: 20151228
